FAERS Safety Report 4842936-3 (Version None)
Quarter: 2005Q4

REPORT INFORMATION
  Report Type: 
  Country: None (occurrence: None)
  Receive Date: 20051130
  Receipt Date: 20051110
  Transmission Date: 20060501
  Serious: Yes (Life-Threatening)
  Sender: FDA-Public Use
  Company Number: 219707

PATIENT
  Age: 51 Year
  Sex: Female
  Weight: 49 kg

DRUGS (10)
  1. AVASTIN [Suspect]
     Indication: COLON CANCER
     Dosage: 225 MG, Q2W, INTRAVENOUS
     Route: 042
     Dates: start: 20050718, end: 20051107
  2. OXALIPLATIN(OXALIPLATIN) [Suspect]
     Indication: COLON CANCER
     Dosage: 130 MG, Q2W, INTRAVENOUS
     Route: 042
     Dates: start: 20050718, end: 20051107
  3. LEUCOVORIN CALCIUM [Suspect]
     Indication: COLON CANCER
     Dosage: 310 MG, 4/MONTH, INTRAVENOUS
     Route: 042
     Dates: start: 20050718, end: 20051107
  4. 5-FLUOFOURACIL(FLUOROURACIL) [Suspect]
     Indication: COLON CANCER
     Dosage: 475 MG, Q2W, INTRAVENOUS
     Route: 042
     Dates: start: 20050718, end: 20051107
  5. PAROXETINE (PAROXETINE HYDROCHLORIDE) [Concomitant]
  6. WARFARIN SODIUM [Concomitant]
  7. NASEPTIN (NEOMYCIN SULFATE, CHLORHEXIDINE HYDROCHLORIDE) [Concomitant]
  8. ONDANSETRON [Concomitant]
  9. DEXAMETHASONE [Concomitant]
  10. LANSOPRAZOLE [Concomitant]

REACTIONS (10)
  - BLOOD PRESSURE INCREASED [None]
  - DYSPNOEA [None]
  - FLUSHING [None]
  - HEART RATE INCREASED [None]
  - HYPERSENSITIVITY [None]
  - NASAL CONGESTION [None]
  - PARAESTHESIA ORAL [None]
  - RASH GENERALISED [None]
  - RASH PRURITIC [None]
  - TREMOR [None]
